FAERS Safety Report 14282053 (Version 1)
Quarter: 2017Q4

REPORT INFORMATION
  Report Type: Spontaneous
  Country: US (occurrence: US)
  Receive Date: 20171213
  Receipt Date: 20171213
  Transmission Date: 20180321
  Serious: No
  Sender: FDA-Public Use
  Company Number: US-LUNDBECK-DKLU2034610

PATIENT
  Sex: Female

DRUGS (1)
  1. NORTHERA [Suspect]
     Active Substance: DROXIDOPA
     Indication: HYPOTENSION
     Dosage: TITRATION AT TIME OF AE: B. STATUS: UNKNOWN
     Route: 048

REACTIONS (5)
  - Visual impairment [Unknown]
  - Hypotension [Unknown]
  - Eye pain [Unknown]
  - Discomfort [Unknown]
  - Nausea [Unknown]
